FAERS Safety Report 8396244-7 (Version None)
Quarter: 2012Q2

REPORT INFORMATION
  Report Type: 
  Country: None (occurrence: None)
  Receive Date: 20120530
  Receipt Date: 20120517
  Transmission Date: 20120825
  Serious: Yes (Hospitalization)
  Sender: FDA-Public Use
  Company Number: US-ROCHE-1072993

PATIENT
  Sex: Female
  Weight: 61.81 kg

DRUGS (5)
  1. AVASTIN [Suspect]
     Indication: MALIGNANT PERITONEAL NEOPLASM
     Dosage: PHASE A (CYCLES 1-6): 15 MG/KG IV OVER 30-90 MIN ON DAY 1, BEGINNING WITH CYCLE 2.
     Route: 042
     Dates: start: 20111130
  2. PACLITAXEL [Suspect]
     Dosage: PHASE A (CYCLES 1-6): 60 MG/M2 IP ON DAY 8.
     Route: 033
     Dates: start: 20111130
  3. CISPLATIN [Suspect]
     Indication: MALIGNANT PERITONEAL NEOPLASM
     Dosage: PHASE A (CYCLES 1-6): 75 MG/M2 IP ON DAY 2.
     Route: 033
     Dates: start: 20111130
  4. AVASTIN [Suspect]
     Dosage: PHASE B (CYCLES 7-22): 15MG/KG IV OVER 30-90 MIN ON DAY 1.DATE OF LAST DOSE PRIOR TO SAE: 11/APR/201
     Route: 042
     Dates: start: 20120411, end: 20120502
  5. PACLITAXEL [Suspect]
     Indication: MALIGNANT PERITONEAL NEOPLASM
     Dosage: PHASE A (CYCLES 1-6): 135MG/M2 IV OVER 3 HOURS ON DAY 1.
     Route: 042
     Dates: start: 20111130

REACTIONS (4)
  - HYPERTENSION [None]
  - DEPRESSED LEVEL OF CONSCIOUSNESS [None]
  - ANAEMIA [None]
  - POSTERIOR REVERSIBLE ENCEPHALOPATHY SYNDROME [None]
